FAERS Safety Report 10219689 (Version 2)
Quarter: 2014Q3

REPORT INFORMATION
  Report Type: Spontaneous
  Country: JP (occurrence: JP)
  Receive Date: 20140605
  Receipt Date: 20140711
  Transmission Date: 20150326
  Serious: Yes (Death, Other)
  Sender: FDA-Public Use
  Company Number: JP-PFIZER INC-2014152585

PATIENT
  Age: 65 Year
  Sex: Male

DRUGS (3)
  1. TAMIFLU [Suspect]
     Active Substance: OSELTAMIVIR PHOSPHATE
     Indication: ANTIVIRAL PROPHYLAXIS
     Dosage: UNK
     Route: 048
  2. IOPAQUE [Concomitant]
     Indication: SCAN WITH CONTRAST
     Dosage: UNK
     Route: 042
     Dates: start: 20140226, end: 20140226
  3. ZOSYN [Suspect]
     Active Substance: PIPERACILLIN SODIUM\TAZOBACTAM SODIUM
     Indication: PNEUMONIA
     Dosage: 4.5 G, 4X/DAY
     Route: 041
     Dates: start: 20140205, end: 20140302

REACTIONS (2)
  - Agranulocytosis [Fatal]
  - Renal impairment [Fatal]

NARRATIVE: CASE EVENT DATE: 20140228
